FAERS Safety Report 18911434 (Version 2)
Quarter: 2021Q2

REPORT INFORMATION
  Report Type: Spontaneous
  Country: CN (occurrence: CN)
  Receive Date: 20210218
  Receipt Date: 20210407
  Transmission Date: 20210717
  Serious: Yes (Other)
  Sender: FDA-Public Use
  Company Number: CN-LUPIN PHARMACEUTICALS INC.-2021-01953

PATIENT
  Age: 5 Year
  Sex: Female

DRUGS (3)
  1. RITUXIMAB. [Concomitant]
     Active Substance: RITUXIMAB
     Indication: ENCEPHALITIS AUTOIMMUNE
     Dosage: 375 MILLIGRAM/SQ. METER /WEEK FOR 4 WEEKS
     Route: 065
  2. IMMUNE GLOBULIN (IMMUNOGLOBULINS NOS) [Suspect]
     Active Substance: IMMUNE GLOBULIN NOS
     Indication: ENCEPHALITIS AUTOIMMUNE
     Dosage: 400 MILLIGRAM/KILOGRAM, QD FOR 5 DAYS
     Route: 042
  3. METHYLPREDNISOLONE. [Suspect]
     Active Substance: METHYLPREDNISOLONE
     Indication: ENCEPHALITIS AUTOIMMUNE
     Dosage: 15?30 MG/ KG DAILY, QD FOR 3?5 DAYS
     Route: 065

REACTIONS (1)
  - Therapy non-responder [Unknown]
